FAERS Safety Report 5749206-X (Version None)
Quarter: 2008Q2

REPORT INFORMATION
  Report Type: 
  Country: None (occurrence: None)
  Receive Date: 20080521
  Receipt Date: 20080521
  Transmission Date: 20081010
  Serious: Yes (Hospitalization)
  Sender: FDA-Public Use
  Company Number: None

PATIENT
  Sex: Male
  Weight: 73.6 kg

DRUGS (12)
  1. OXACILLIN [Suspect]
     Indication: BACTERAEMIA
     Dosage: 2GM EVERY 6 HOURS IV BOLUS
     Route: 040
     Dates: start: 20080427, end: 20080516
  2. COUMADIN [Concomitant]
  3. CALCIUM CARBONATE [Concomitant]
  4. CLOTRIMAZOLE [Concomitant]
  5. IMDUR [Concomitant]
  6. FLONASE [Concomitant]
  7. PREDNISONE [Concomitant]
  8. RESTORIL [Concomitant]
  9. FOLIC ACID [Concomitant]
  10. OMEPRAZOLE [Concomitant]
  11. NITROGLYCERIN [Concomitant]
  12. TOPROL-XL [Concomitant]

REACTIONS (1)
  - NO ADVERSE EVENT [None]
